FAERS Safety Report 10402127 (Version 1)
Quarter: 2014Q3

REPORT INFORMATION
  Report Type: Spontaneous
  Country: US (occurrence: None)
  Receive Date: 20140820
  Receipt Date: 20140820
  Transmission Date: 20150326
  Serious: Yes (Hospitalization)
  Sender: FDA-Public Use
  Company Number: None

PATIENT
  Age: 60 Year
  Sex: Male
  Weight: 66.7 kg

DRUGS (1)
  1. SULFAMETHOXAZOLE/TRIMETHOPRIM [Suspect]
     Active Substance: SULFAMETHOXAZOLE\TRIMETHOPRIM
     Indication: PANCREATITIS
     Route: 048
     Dates: start: 20140221, end: 20140303

REACTIONS (9)
  - Vomiting [None]
  - Hypophagia [None]
  - Productive cough [None]
  - Diarrhoea [None]
  - Nausea [None]
  - Pancreatitis acute [None]
  - Lipase increased [None]
  - Pyrexia [None]
  - Abdominal pain [None]

NARRATIVE: CASE EVENT DATE: 20140303
